FAERS Safety Report 25617122 (Version 3)
Quarter: 2025Q3

REPORT INFORMATION
  Report Type: Spontaneous
  Country: US (occurrence: US)
  Receive Date: 20250729
  Receipt Date: 20250811
  Transmission Date: 20251021
  Serious: Yes (Life-Threatening, Hospitalization, Other)
  Sender: AUROBINDO
  Company Number: US-MLMSERVICE-20250711-PI573302-00149-1

PATIENT
  Age: 70 Year
  Sex: Male

DRUGS (1)
  1. FLECAINIDE [Suspect]
     Active Substance: FLECAINIDE
     Indication: Product used for unknown indication
     Route: 048
     Dates: start: 20240110

REACTIONS (2)
  - Cardiogenic shock [Not Recovered/Not Resolved]
  - Drug level increased [Unknown]

NARRATIVE: CASE EVENT DATE: 20250101
